FAERS Safety Report 7206408-3 (Version None)
Quarter: 2010Q4

REPORT INFORMATION
  Report Type: 
  Country: None (occurrence: None)
  Receive Date: 20101229
  Receipt Date: 20101229
  Transmission Date: 20110411
  Serious: Yes (Hospitalization)
  Sender: FDA-Public Use
  Company Number: None

PATIENT
  Age: 68 Year
  Sex: Male

DRUGS (2)
  1. ENOXAPARIN [Suspect]
     Indication: ATRIAL FIBRILLATION
     Dosage: 100 MG EVERY DAY SQ
     Route: 058
     Dates: start: 20101207, end: 20101216
  2. ENOXAPARIN [Suspect]
     Indication: CEREBROVASCULAR ACCIDENT
     Dosage: 100 MG EVERY DAY SQ
     Route: 058
     Dates: start: 20101207, end: 20101216

REACTIONS (2)
  - CLOSTRIDIUM DIFFICILE COLITIS [None]
  - GASTRIC HAEMORRHAGE [None]
